FAERS Safety Report 9529135 (Version 1)
Quarter: 2013Q3

REPORT INFORMATION
  Report Type: Not Available
  Country: US (occurrence: US)
  Receive Date: 20130916
  Receipt Date: 20130916
  Transmission Date: 20140515
  Serious: Yes (Other)
  Sender: FDA-Public Use
  Company Number: US-LUNDBECK-DKLU1085472

PATIENT
  Sex: Male

DRUGS (4)
  1. ONFI [Suspect]
     Indication: PARTIAL SEIZURES
     Route: 048
     Dates: start: 201203, end: 201208
  2. ONFI [Suspect]
     Route: 048
     Dates: start: 20120809
  3. SABRIL     (TABLET) [Concomitant]
     Indication: PRODUCT USED FOR UNKNOWN INDICATION
  4. KEPPRA [Concomitant]
     Indication: PRODUCT USED FOR UNKNOWN INDICATION

REACTIONS (2)
  - Convulsion [Not Recovered/Not Resolved]
  - Unevaluable event [Not Recovered/Not Resolved]
